FAERS Safety Report 11159631 (Version 1)
Quarter: 2015Q2

REPORT INFORMATION
  Report Type: Spontaneous
  Country: US (occurrence: US)
  Receive Date: 20150603
  Receipt Date: 20150603
  Transmission Date: 20150821
  Serious: No
  Sender: FDA-Public Use
  Company Number: US-ABBVIE-14K-163-1268578-00

PATIENT
  Sex: Male
  Weight: 118.04 kg

DRUGS (1)
  1. MARINOL [Suspect]
     Active Substance: DRONABINOL
     Indication: PRODUCT USED FOR UNKNOWN INDICATION
     Dosage: SINGLE DOSE
     Dates: start: 201407, end: 201407

REACTIONS (6)
  - Therapeutic response unexpected [Unknown]
  - Anxiety [Unknown]
  - Increased appetite [Unknown]
  - Blood glucose normal [Unknown]
  - Sleep disorder [Unknown]
  - Wrong patient received medication [Unknown]

NARRATIVE: CASE EVENT DATE: 201407
